FAERS Safety Report 11189991 (Version 5)
Quarter: 2018Q4

REPORT INFORMATION
  Report Type: Spontaneous
  Country: US (occurrence: US)
  Receive Date: 20150615
  Receipt Date: 20181115
  Transmission Date: 20190204
  Serious: No
  Sender: FDA-Public Use
  Company Number: US-PFIZER INC-2015195935

PATIENT
  Age: 76 Year
  Sex: Female
  Weight: 85.55 kg

DRUGS (8)
  1. MULTIVITAMINS [Concomitant]
     Active Substance: VITAMINS
     Dosage: 1 DF, DAILY
     Route: 048
  2. CELECOXIB. [Suspect]
     Active Substance: CELECOXIB
     Indication: ARTHRALGIA
  3. 5-HTP [Concomitant]
     Active Substance: OXITRIPTAN
     Dosage: 100 MG, UNK
  4. CELECOXIB. [Suspect]
     Active Substance: CELECOXIB
     Indication: OSTEOARTHRITIS
     Dosage: 200 MG, 1X/DAY
     Dates: end: 201506
  5. CELECOXIB. [Suspect]
     Active Substance: CELECOXIB
     Indication: JOINT SWELLING
  6. FISH OIL [Concomitant]
     Active Substance: FISH OIL
     Dosage: UNK
  7. KEFLEX [Concomitant]
     Active Substance: CEPHALEXIN
     Dosage: 500 MG, UNK
  8. OMEGA 3-6-9 [Concomitant]
     Active Substance: FISH OIL
     Dosage: UNK

REACTIONS (10)
  - Diarrhoea [Recovered/Resolved]
  - Dysstasia [Unknown]
  - Drug effect incomplete [Unknown]
  - Pain [Unknown]
  - Ulcer [Recovered/Resolved]
  - Pain in extremity [Recovered/Resolved]
  - Epistaxis [Unknown]
  - Nausea [Recovered/Resolved]
  - Abdominal pain upper [Unknown]
  - Abdominal pain [Recovered/Resolved]

NARRATIVE: CASE EVENT DATE: 2015
